FAERS Safety Report 24463708 (Version 1)
Quarter: 2024Q4

REPORT INFORMATION
  Report Type: Report from Study
  Country: US (occurrence: US)
  Receive Date: 20241018
  Receipt Date: 20241018
  Transmission Date: 20250114
  Serious: No
  Sender: ROCHE
  Company Number: US-ROCHE-3490810

PATIENT
  Age: 51 Year
  Sex: Male
  Weight: 102.06 kg

DRUGS (4)
  1. XOLAIR [Suspect]
     Active Substance: OMALIZUMAB
     Indication: Idiopathic urticaria
     Dosage: 3 DOSES EVERY 30 DAYS
     Route: 058
     Dates: start: 2018, end: 2018
  2. XOLAIR [Suspect]
     Active Substance: OMALIZUMAB
     Route: 058
     Dates: start: 2018, end: 2018
  3. XOLAIR [Suspect]
     Active Substance: OMALIZUMAB
     Dosage: 1 DOSE EVERY 60 DAYS
     Route: 058
     Dates: start: 2018, end: 2018
  4. ATORVASTATIN [Concomitant]
     Active Substance: ATORVASTATIN

REACTIONS (2)
  - Off label use [Unknown]
  - No adverse event [Unknown]

NARRATIVE: CASE EVENT DATE: 20180101
